FAERS Safety Report 7576260-5 (Version None)
Quarter: 2011Q2

REPORT INFORMATION
  Report Type: 
  Country: None (occurrence: None)
  Receive Date: 20110628
  Receipt Date: 20110613
  Transmission Date: 20111010
  Serious: Yes (Other)
  Sender: FDA-Public Use
  Company Number: US-BAYER-201019483NA

PATIENT
  Age: 23 Year
  Sex: Female
  Weight: 86.168 kg

DRUGS (2)
  1. ASCORBIC ACID [Concomitant]
     Dosage: UNK
     Dates: start: 20050101
  2. YAZ [Suspect]
     Indication: PRODUCT USED FOR UNKNOWN INDICATION
     Dosage: UNK
     Dates: start: 20030101, end: 20070101

REACTIONS (2)
  - CHOLECYSTITIS [None]
  - BILE DUCT STONE [None]
